FAERS Safety Report 20159370 (Version 2)
Quarter: 2022Q1

REPORT INFORMATION
  Report Type: Spontaneous
  Country: DE (occurrence: DE)
  Receive Date: 20211208
  Receipt Date: 20220117
  Transmission Date: 20220424
  Serious: Yes (Life-Threatening, Hospitalization, Disabling, Other)
  Sender: FDA-Public Use
  Company Number: DE-SA-SAC20211207000351

PATIENT
  Age: 28 Year
  Sex: Female

DRUGS (9)
  1. LEMTRADA [Suspect]
     Active Substance: ALEMTUZUMAB
     Indication: Multiple sclerosis
     Dosage: 12 MG, QD
     Route: 042
     Dates: start: 20170925, end: 20170929
  2. OCREVUS [Concomitant]
     Active Substance: OCRELIZUMAB
     Indication: Multiple sclerosis
     Dosage: UNK
     Route: 042
     Dates: start: 201901
  3. PREGABALIN [Concomitant]
     Active Substance: PREGABALIN
     Indication: Pain
     Dosage: 100 MG, BID
     Route: 048
     Dates: start: 201804
  4. MIRABEGRON [Concomitant]
     Active Substance: MIRABEGRON
     Indication: Bladder disorder
     Dosage: 50 MG, QD
     Route: 048
     Dates: start: 202008
  5. MIRABEGRON [Concomitant]
     Active Substance: MIRABEGRON
     Indication: Urinary tract disorder
  6. MIRTAZAPINE [Concomitant]
     Active Substance: MIRTAZAPINE
     Indication: Depression
     Dosage: 30 UNK
     Route: 048
     Dates: start: 202006
  7. DALFAMPRIDINE [Concomitant]
     Active Substance: DALFAMPRIDINE
     Indication: Multiple sclerosis
     Dosage: 10 MG, BID
     Route: 048
     Dates: start: 201807
  8. BISOPROLOL [Concomitant]
     Active Substance: BISOPROLOL
     Dosage: 5 MG, QD
  9. DIENOGEST [Concomitant]
     Active Substance: DIENOGEST
     Dosage: 2 MG, QD

REACTIONS (3)
  - Colitis [Unknown]
  - Diarrhoea haemorrhagic [Unknown]
  - Peritonitis [Unknown]

NARRATIVE: CASE EVENT DATE: 20210806
